FAERS Safety Report 13617753 (Version 1)
Quarter: 2017Q2

REPORT INFORMATION
  Report Type: Spontaneous
  Country: JP (occurrence: JP)
  Receive Date: 20170606
  Receipt Date: 20170606
  Transmission Date: 20170830
  Serious: Yes (Other)
  Sender: FDA-Public Use
  Company Number: PHHY2017JP080818

PATIENT
  Age: 74 Year
  Sex: Male
  Weight: 61.8 kg

DRUGS (5)
  1. TEGAFUR [Concomitant]
     Active Substance: TEGAFUR
     Indication: ADENOCARCINOMA GASTRIC
     Dosage: 80 MG/M2, UNK
     Route: 065
  2. OXALIPLATIN. [Suspect]
     Active Substance: OXALIPLATIN
     Indication: ADENOCARCINOMA GASTRIC
     Dosage: 100 MG/M2, UNK
     Route: 065
  3. OTERACIL [Concomitant]
     Active Substance: OTERACIL
     Indication: ADENOCARCINOMA GASTRIC
     Route: 065
  4. EDOXABAN [Interacting]
     Active Substance: EDOXABAN TOSYLATE
     Indication: EMBOLISM VENOUS
     Dosage: 30 MG, UNK
     Route: 065
  5. GIMERACIL [Concomitant]
     Active Substance: GIMERACIL
     Indication: ADENOCARCINOMA GASTRIC
     Dosage: 80 MG/M2, UNK
     Route: 065

REACTIONS (3)
  - Drug interaction [Unknown]
  - Altered state of consciousness [Unknown]
  - Ischaemic stroke [Unknown]
